FAERS Safety Report 7327401-6 (Version None)
Quarter: 2011Q1

REPORT INFORMATION
  Report Type: 
  Country: None (occurrence: None)
  Receive Date: 20110303
  Receipt Date: 20110225
  Transmission Date: 20110831
  Serious: Yes (Disabling)
  Sender: FDA-Public Use
  Company Number: GB-BAYER-2011-018664

PATIENT
  Age: 69 Year
  Sex: Male

DRUGS (1)
  1. ULTRAVIST 300 [Suspect]
     Indication: COMPUTERISED TOMOGRAM
     Dosage: 75 ML, UNK
     Route: 042
     Dates: start: 20100919, end: 20100919

REACTIONS (3)
  - CIRCULATORY COLLAPSE [None]
  - FEELING OF BODY TEMPERATURE CHANGE [None]
  - AMNESIA [None]
